FAERS Safety Report 17703425 (Version 1)
Quarter: 2020Q2

REPORT INFORMATION
  Report Type: Report from Study
  Country: None (occurrence: US)
  Receive Date: 20200423
  Receipt Date: 20200423
  Transmission Date: 20200714
  Serious: Yes (Other)
  Sender: FDA-Public Use
  Company Number: US-ABBVIE-20K-163-3298323-00

PATIENT
  Sex: Female

DRUGS (1)
  1. HUMIRA [Suspect]
     Active Substance: ADALIMUMAB
     Indication: RHEUMATOID ARTHRITIS
     Route: 058

REACTIONS (10)
  - Injection site pain [Unknown]
  - Burning sensation [Unknown]
  - Arthralgia [Unknown]
  - Pain [Unknown]
  - Hypoaesthesia [Unknown]
  - Joint swelling [Not Recovered/Not Resolved]
  - Sneezing [Unknown]
  - Tendon operation [Unknown]
  - Fatigue [Unknown]
  - Allergic cough [Unknown]

NARRATIVE: CASE EVENT DATE: 2020
